FAERS Safety Report 6643442-6 (Version None)
Quarter: 2010Q1

REPORT INFORMATION
  Report Type: 
  Country: None (occurrence: None)
  Receive Date: 20100319
  Receipt Date: 20100317
  Transmission Date: 20100710
  Serious: Yes (Hospitalization)
  Sender: FDA-Public Use
  Company Number: ES-MERCK-1001ESP00039

PATIENT
  Age: 54 Year
  Sex: Female

DRUGS (3)
  1. MODURETIC 5-50 [Suspect]
     Indication: HYPERTENSION
     Route: 048
     Dates: start: 20091201, end: 20091201
  2. ENALAPRIL MALEATE [Suspect]
     Indication: HYPERTENSION
     Route: 048
     Dates: start: 20090807, end: 20091201
  3. BETAHISTINE HYDROCHLORIDE [Concomitant]
     Indication: VERTIGO
     Route: 048
     Dates: start: 20091201, end: 20091201

REACTIONS (4)
  - ASTHENIA [None]
  - BLOOD CREATININE INCREASED [None]
  - DRUG INTERACTION [None]
  - HYPOTENSION [None]
